FAERS Safety Report 7853773 (Version 2)
Quarter: 2012Q4

REPORT INFORMATION
  Report Type: 
  Country: IT (occurrence: IT)
  Receive Date: 20110314
  Receipt Date: 20121031
  Transmission Date: 20130627
  Serious: Yes (Hospitalization)
  Sender: FDA-Public Use
  Company Number: IT-AMGEN-ITASP2011012339

PATIENT
  Age: 64 Year
  Sex: Male

DRUGS (3)
  1. VECTIBIX [Suspect]
     Indication: COLON CANCER
     Dosage: 400 mg, UNK
     Route: 042
     Dates: start: 20110216, end: 20110216
  2. PANTOPAN [Suspect]
     Dosage: 40 mg, qd
     Route: 048
     Dates: start: 20110216, end: 20110223
  3. SAMYR                              /00882301/ [Concomitant]
     Dosage: 400 mg/5 ml
     Dates: start: 20110216, end: 20110223

REACTIONS (1)
  - Thrombocytopenia [Not Recovered/Not Resolved]
